FAERS Safety Report 6434942-2 (Version None)
Quarter: 2009Q4

REPORT INFORMATION
  Report Type: 
  Country: None (occurrence: None)
  Receive Date: 20091110
  Receipt Date: 20091102
  Transmission Date: 20100525
  Serious: Yes (Other)
  Sender: FDA-Public Use
  Company Number: GB-JNJFOC-20091005971

PATIENT
  Sex: Female

DRUGS (1)
  1. RISPERDAL CONSTA [Suspect]
     Indication: PERSONALITY DISORDER
     Route: 030

REACTIONS (4)
  - ADNEXA UTERI PAIN [None]
  - ARTHRALGIA [None]
  - BLOOD PROLACTIN INCREASED [None]
  - MASTITIS [None]
